FAERS Safety Report 6855672-9 (Version None)
Quarter: 2010Q3

REPORT INFORMATION
  Report Type: 
  Country: None (occurrence: None)
  Receive Date: 20100719
  Receipt Date: 20100506
  Transmission Date: 20110219
  Serious: No
  Sender: FDA-Public Use
  Company Number: US-KINGPHARMUSA00001-K201000564

PATIENT
  Age: 52 Year
  Sex: Male
  Weight: 92.971 kg

DRUGS (3)
  1. LEVOXYL [Suspect]
     Indication: HYPOTHYROIDISM
     Dosage: 6.25 MCG, QAM
     Route: 048
     Dates: start: 20080101
  2. LEVOXYL [Suspect]
     Dosage: 25 MCG, QAM
     Route: 048
  3. XALATAN [Concomitant]

REACTIONS (5)
  - BLOOD PRESSURE INCREASED [None]
  - ENERGY INCREASED [None]
  - FEELING JITTERY [None]
  - INSOMNIA [None]
  - THYROID FUNCTION TEST ABNORMAL [None]
